FAERS Safety Report 23772115 (Version 4)
Quarter: 2024Q2

REPORT INFORMATION
  Report Type: Report from Study
  Country: IN (occurrence: IN)
  Receive Date: 20240423
  Receipt Date: 20240621
  Transmission Date: 20240716
  Serious: Yes (Other)
  Sender: FDA-Public Use
  Company Number: IN-002147023-NVSC2024IN084059

PATIENT
  Age: 68 Year
  Sex: Female

DRUGS (2)
  1. RIBOCICLIB [Suspect]
     Active Substance: RIBOCICLIB
     Indication: Breast cancer metastatic
     Dosage: 600 MG, TID (1-1-1 AFTER FOOD - DAILY - 21 DAYS QTY 63)
     Route: 048
     Dates: start: 20221215
  2. RIBOCICLIB [Suspect]
     Active Substance: RIBOCICLIB
     Indication: Breast cancer
     Dosage: 600 MG, QD
     Route: 048

REACTIONS (7)
  - Pneumothorax [Recovering/Resolving]
  - Pulmonary fibrosis [Recovering/Resolving]
  - Pulmonary mass [Recovering/Resolving]
  - Pulmonary septal thickening [Recovering/Resolving]
  - Pulmonary calcification [Recovering/Resolving]
  - Positron emission tomogram abnormal [Unknown]
  - Off label use [Recovering/Resolving]

NARRATIVE: CASE EVENT DATE: 20221220
